FAERS Safety Report 26154428 (Version 1)
Quarter: 2025Q4

REPORT INFORMATION
  Report Type: Spontaneous
  Country: CN (occurrence: CN)
  Receive Date: 20251215
  Receipt Date: 20251215
  Transmission Date: 20260117
  Serious: Yes (Life-Threatening, Hospitalization, Other)
  Sender: ROCHE
  Company Number: CN-ROCHE-10000456450

PATIENT
  Age: 71 Year
  Sex: Male

DRUGS (5)
  1. GAZYVA [Suspect]
     Active Substance: OBINUTUZUMAB
     Indication: Diffuse large B-cell lymphoma
     Route: 041
     Dates: start: 20251125, end: 20251125
  2. GAZYVA [Suspect]
     Active Substance: OBINUTUZUMAB
     Indication: Hypertension
  3. GAZYVA [Suspect]
     Active Substance: OBINUTUZUMAB
     Indication: Hepatitis B virus test positive
  4. GAZYVA [Suspect]
     Active Substance: OBINUTUZUMAB
     Indication: Neoplasm malignant
  5. GLOFITAMAB [Suspect]
     Active Substance: GLOFITAMAB
     Indication: Product used for unknown indication

REACTIONS (28)
  - Hiccups [Recovering/Resolving]
  - Tumour lysis syndrome [Recovering/Resolving]
  - Dyspnoea [Recovering/Resolving]
  - Rash [Recovering/Resolving]
  - Off label use [Unknown]
  - Neck mass [Unknown]
  - Blood sodium decreased [Recovering/Resolving]
  - Blood chloride decreased [Recovering/Resolving]
  - Oxygen saturation decreased [Recovering/Resolving]
  - Confusional state [Recovering/Resolving]
  - Blood pressure decreased [Recovering/Resolving]
  - Somnolence [Recovering/Resolving]
  - Logorrhoea [Recovering/Resolving]
  - Blood gases abnormal [Unknown]
  - Disorganised speech [Not Recovered/Not Resolved]
  - Protein total decreased [Unknown]
  - Blood albumin decreased [Unknown]
  - Globulins increased [Unknown]
  - Bilirubin conjugated increased [Unknown]
  - Aspartate aminotransferase increased [Unknown]
  - Alanine aminotransferase increased [Unknown]
  - Blood creatinine increased [Unknown]
  - Blood uric acid increased [Unknown]
  - Blood calcium decreased [Unknown]
  - Hypoproteinaemia [Unknown]
  - Melaena [Unknown]
  - Erythema [Recovering/Resolving]
  - Cytokine release syndrome [Unknown]

NARRATIVE: CASE EVENT DATE: 20251126
